FAERS Safety Report 20518277 (Version 1)
Quarter: 2022Q1

REPORT INFORMATION
  Report Type: Spontaneous
  Country: US (occurrence: None)
  Receive Date: 20220224
  Receipt Date: 20220224
  Transmission Date: 20220423
  Serious: Yes (Other)
  Sender: FDA-Public Use
  Company Number: None

PATIENT
  Age: 72 Year
  Sex: Male
  Weight: 72 kg

DRUGS (3)
  1. ICY HOT [Suspect]
     Active Substance: MENTHOL\METHYL SALICYLATE
     Indication: Second degree chemical burn of skin
     Dosage: OTHER QUANTITY : 1 THIN;?FREQUENCY : AS NEEDED;?
     Route: 061
     Dates: start: 20220224, end: 20220224
  2. tears for eyes [Concomitant]
  3. OMEGA 3 [Concomitant]
     Active Substance: CAPSAICIN

REACTIONS (2)
  - Chemical burn [None]
  - Application site burn [None]

NARRATIVE: CASE EVENT DATE: 20220224
